FAERS Safety Report 21188341 (Version 1)
Quarter: 2022Q3

REPORT INFORMATION
  Report Type: Spontaneous
  Country: US (occurrence: None)
  Receive Date: 20220809
  Receipt Date: 20220809
  Transmission Date: 20221026
  Serious: No
  Sender: FDA-Public Use
  Company Number: 2022A263044

PATIENT
  Age: 25848 Day
  Sex: Female
  Weight: 79.8 kg

DRUGS (1)
  1. PULMICORT FLEXHALER [Suspect]
     Active Substance: BUDESONIDE
     Indication: Asthma
     Route: 055
     Dates: start: 20220713, end: 20220718

REACTIONS (7)
  - Irritability [Not Recovered/Not Resolved]
  - Restlessness [Not Recovered/Not Resolved]
  - Agitation [Not Recovered/Not Resolved]
  - Feeling abnormal [Not Recovered/Not Resolved]
  - Palpitations [Unknown]
  - Dyspnoea [Not Recovered/Not Resolved]
  - Device use issue [Unknown]

NARRATIVE: CASE EVENT DATE: 20220713
